FAERS Safety Report 5796985-1 (Version None)
Quarter: 2008Q2

REPORT INFORMATION
  Report Type: 
  Country: None (occurrence: None)
  Receive Date: 20080618
  Receipt Date: 20070718
  Transmission Date: 20081010
  Serious: Yes (Other)
  Sender: FDA-Public Use
  Company Number: 200711742US

PATIENT
  Age: 78 Year
  Sex: Female
  Weight: 67 kg

DRUGS (8)
  1. LANTUS [Suspect]
     Indication: TYPE 1 DIABETES MELLITUS
     Dosage: 11 U BID INJ
     Route: 042
     Dates: start: 20050501
  2. LANTUS [Suspect]
     Indication: TYPE 1 DIABETES MELLITUS
     Dosage: 10 U BID INJ
     Route: 042
  3. OPTICLIK [Suspect]
     Indication: TYPE 1 DIABETES MELLITUS
     Dates: start: 20050101, end: 20070301
  4. HUMALOG [Concomitant]
     Dosage: 3 U AC
  5. PRAVASTATIN SODIUM (PRAVACHOL) [Concomitant]
  6. LISINOPRIL [Concomitant]
  7. CALCIUM [Concomitant]
  8. ESOMEPRAZOLE [Concomitant]

REACTIONS (3)
  - BLOOD GLUCOSE FLUCTUATION [None]
  - HYPOGLYCAEMIC UNCONSCIOUSNESS [None]
  - VOMITING [None]
